FAERS Safety Report 24680318 (Version 1)
Quarter: 2024Q4

REPORT INFORMATION
  Report Type: Report from Study
  Country: US (occurrence: US)
  Receive Date: 20241129
  Receipt Date: 20241129
  Transmission Date: 20250115
  Serious: Yes (Hospitalization)
  Sender: NOVARTIS
  Company Number: US-002147023-NVSC2024US227593

PATIENT
  Age: 30 Year
  Sex: Female

DRUGS (1)
  1. FABHALTA [Suspect]
     Active Substance: IPTACOPAN HYDROCHLORIDE
     Indication: Product used for unknown indication
     Dosage: 200 MG, BID
     Route: 048
     Dates: start: 20241120, end: 20241126

REACTIONS (4)
  - Anaphylactic reaction [Unknown]
  - Swollen tongue [Unknown]
  - Throat tightness [Unknown]
  - Lip swelling [Unknown]

NARRATIVE: CASE EVENT DATE: 20241126
